FAERS Safety Report 16051724 (Version 1)
Quarter: 2019Q1

REPORT INFORMATION
  Report Type: Report from Study
  Country: DE (occurrence: DE)
  Receive Date: 20190308
  Receipt Date: 20190308
  Transmission Date: 20190418
  Serious: Yes (Other)
  Sender: FDA-Public Use
  Company Number: DE-TEVA-2019-DE-1019590

PATIENT
  Age: 43 Year
  Sex: Female

DRUGS (1)
  1. COPAXONE [Suspect]
     Active Substance: GLATIRAMER ACETATE
     Indication: MULTIPLE SCLEROSIS
     Dates: start: 20170523

REACTIONS (1)
  - Multiple sclerosis [Unknown]

NARRATIVE: CASE EVENT DATE: 201901
